FAERS Safety Report 18873026 (Version 1)
Quarter: 2021Q1

REPORT INFORMATION
  Report Type: Spontaneous
  Country: JP (occurrence: JP)
  Receive Date: 20210210
  Receipt Date: 20210210
  Transmission Date: 20210420
  Serious: Yes (Hospitalization, Other)
  Sender: FDA-Public Use
  Company Number: JP-009507513-2101JPN000955J

PATIENT
  Age: 65 Year
  Sex: Male

DRUGS (2)
  1. KEYTRUDA [Suspect]
     Active Substance: PEMBROLIZUMAB
     Indication: NON-SMALL CELL LUNG CANCER STAGE IV
     Dosage: 200 MILLIGRAM, Q3W
     Route: 041
     Dates: start: 202012
  2. ISCOTIN [Suspect]
     Active Substance: ISONIAZID
     Indication: LATENT TUBERCULOSIS
     Dosage: UNK
     Route: 048
     Dates: end: 202101

REACTIONS (9)
  - Gallbladder enlargement [Unknown]
  - Liver function test increased [Recovering/Resolving]
  - Lymphadenopathy [Unknown]
  - Gallbladder disorder [Unknown]
  - Pruritus [Unknown]
  - Jaundice [Unknown]
  - Hepatitis [Unknown]
  - Hepatic steatosis [Unknown]
  - Malaise [Unknown]

NARRATIVE: CASE EVENT DATE: 202101
